FAERS Safety Report 7471749-1 (Version None)
Quarter: 2011Q2

REPORT INFORMATION
  Report Type: 
  Country: None (occurrence: None)
  Receive Date: 20110511
  Receipt Date: 20100324
  Transmission Date: 20111010
  Serious: No
  Sender: FDA-Public Use
  Company Number: A0851809A

PATIENT
  Age: 54 Year
  Sex: Female

DRUGS (5)
  1. NAVELBINE [Suspect]
     Dosage: 35MG VARIABLE DOSE
     Route: 042
     Dates: start: 20100316
  2. MVI W/MINERALS [Concomitant]
  3. HERCEPTIN [Concomitant]
  4. TYKERB [Suspect]
     Indication: BREAST CANCER
     Dosage: 1G PER DAY
     Route: 048
     Dates: start: 20100317
  5. VITAMIN TAB [Concomitant]

REACTIONS (4)
  - DIARRHOEA [None]
  - DIZZINESS [None]
  - WEIGHT DECREASED [None]
  - HAEMORRHOIDS [None]
